FAERS Safety Report 5737318-6 (Version None)
Quarter: 2008Q2

REPORT INFORMATION
  Report Type: 
  Country: None (occurrence: None)
  Receive Date: 20080514
  Receipt Date: 20080505
  Transmission Date: 20081010
  Serious: Yes (Other)
  Sender: FDA-Public Use
  Company Number: US-PURDUE-USA_2008_0032759

PATIENT
  Age: 41 Year
  Sex: Female

DRUGS (14)
  1. DILAUDID [Suspect]
     Indication: DRUG USE FOR UNKNOWN INDICATION
     Dosage: 4 MG, PRN
     Route: 048
     Dates: start: 20010425, end: 20060118
  2. OXYCONTIN [Suspect]
     Indication: DRUG USE FOR UNKNOWN INDICATION
     Dosage: 40 MG, BID
     Route: 048
     Dates: start: 20010405, end: 20060712
  3. OXYIR CAPSULES 5 MG [Suspect]
     Indication: DRUG USE FOR UNKNOWN INDICATION
     Dosage: 15 MG, TID
     Route: 048
     Dates: start: 20030507
  4. ACTIQ [Suspect]
     Indication: POST-TRAUMATIC PAIN
     Dosage: 1200 MCG, SEE TEXT
     Route: 002
     Dates: start: 20020808, end: 20070615
  5. PERCOCET [Suspect]
     Indication: DRUG USE FOR UNKNOWN INDICATION
     Dosage: 10 MG, PRN
     Route: 048
     Dates: start: 20031002
  6. KADIAN [Suspect]
     Indication: DRUG USE FOR UNKNOWN INDICATION
     Dosage: 60 MG, BID
     Dates: start: 20030601, end: 20060823
  7. LORTAB [Suspect]
     Indication: DRUG USE FOR UNKNOWN INDICATION
     Dosage: 10 MG, PRN
     Dates: start: 20010405, end: 20050101
  8. DURAGESIC-100 [Suspect]
     Indication: DRUG USE FOR UNKNOWN INDICATION
     Dosage: 50 MCG, Q1H
  9. XANAX [Concomitant]
  10. EFFEXOR [Concomitant]
  11. GABITRIL [Concomitant]
  12. LYRICA [Concomitant]
  13. TRAZODONE HCL [Concomitant]
  14. ZONEGRAN [Concomitant]

REACTIONS (6)
  - ABSCESS ORAL [None]
  - DENTAL CARIES [None]
  - DRUG DEPENDENCE [None]
  - DRUG TOLERANCE [None]
  - PERSONALITY CHANGE [None]
  - TOOTH LOSS [None]
